FAERS Safety Report 9969790 (Version 1)
Quarter: 2014Q1

REPORT INFORMATION
  Report Type: Spontaneous
  Country: US (occurrence: None)
  Receive Date: 20140131
  Receipt Date: 20140131
  Transmission Date: 20141002
  Serious: Yes (Other)
  Sender: FDA-Public Use
  Company Number: 084692

PATIENT
  Sex: Male
  Weight: 78 kg

DRUGS (3)
  1. KEPPRA [Suspect]
     Indication: PARTIAL SEIZURES
     Route: 048
  2. KEPPRA [Suspect]
     Indication: EPILEPSY
     Route: 048
  3. DILANTIN /00017401/ (TO CONTINUING) [Concomitant]

REACTIONS (3)
  - Convulsion [None]
  - Grand mal convulsion [None]
  - Overdose [None]
